FAERS Safety Report 7101337-8 (Version None)
Quarter: 2010Q4

REPORT INFORMATION
  Report Type: 
  Country: None (occurrence: None)
  Receive Date: 20101115
  Receipt Date: 20101102
  Transmission Date: 20110411
  Serious: Yes (Other)
  Sender: FDA-Public Use
  Company Number: AU-JNJFOC-20101103166

PATIENT
  Age: 26 Year
  Sex: Female

DRUGS (3)
  1. DOMPERIDONE [Suspect]
     Indication: IMPAIRED GASTRIC EMPTYING
     Route: 065
  2. CISAPRIDE [Suspect]
     Indication: IMPAIRED GASTRIC EMPTYING
     Route: 065
  3. NIZATIDINE [Suspect]
     Indication: IMPAIRED GASTRIC EMPTYING
     Route: 065

REACTIONS (3)
  - DRUG INEFFECTIVE [None]
  - MALNUTRITION [None]
  - WEIGHT DECREASED [None]
